FAERS Safety Report 8563484-3 (Version None)
Quarter: 2012Q3

REPORT INFORMATION
  Report Type: 
  Country: None (occurrence: None)
  Receive Date: 20120802
  Receipt Date: 20120723
  Transmission Date: 20120928
  Serious: No
  Sender: FDA-Public Use
  Company Number: US-009507513-1207USA010731

PATIENT

DRUGS (3)
  1. ZOCOR [Suspect]
     Route: 048
  2. CELEBREX [Suspect]
  3. NEURONTIN [Suspect]

REACTIONS (1)
  - MYALGIA [None]
